FAERS Safety Report 16159824 (Version 1)
Quarter: 2019Q2

REPORT INFORMATION
  Report Type: Spontaneous
  Country: US (occurrence: US)
  Receive Date: 20190404
  Receipt Date: 20190404
  Transmission Date: 20190711
  Serious: Yes (Other)
  Sender: FDA-Public Use
  Company Number: US-PURDUE-USA-2019-0146721

PATIENT
  Sex: Female

DRUGS (2)
  1. HYDROCODONE BITARTRATE AND ACETAMINOPHEN [Suspect]
     Active Substance: ACETAMINOPHEN\HYDROCODONE BITARTRATE
     Indication: NEUROPATHY PERIPHERAL
     Dosage: UNK
     Route: 048
     Dates: end: 2014
  2. TEGRETOL [Suspect]
     Active Substance: CARBAMAZEPINE
     Indication: PAIN
     Route: 065

REACTIONS (7)
  - Temporomandibular joint syndrome [Unknown]
  - Liver disorder [Unknown]
  - Hyponatraemia [Unknown]
  - Pain [Unknown]
  - Drug ineffective [Unknown]
  - Vertigo [Unknown]
  - Trigeminal neuralgia [Unknown]
